FAERS Safety Report 8854353 (Version 1)
Quarter: 2012Q4

REPORT INFORMATION
  Report Type: Spontaneous
  Country: US (occurrence: None)
  Receive Date: 20121019
  Receipt Date: 20121019
  Transmission Date: 20130627
  Serious: Yes (Disabling)
  Sender: FDA-Public Use
  Company Number: None

PATIENT
  Age: 54 Year
  Sex: Male
  Weight: 58.97 kg

DRUGS (4)
  1. PEG-INTERFERON [Suspect]
     Indication: HEPATITIS
     Dosage: INJECT 96MCG/0.4ML UNDER THE S once/week sq
     Route: 058
     Dates: start: 20120703, end: 20120818
  2. TELAPREVIR [Concomitant]
  3. RIBAVIRIN [Concomitant]
  4. EPOETIN ALFA [Concomitant]

REACTIONS (13)
  - Fall [None]
  - Movement disorder [None]
  - Coma [None]
  - Pneumonia [None]
  - Dehydration [None]
  - Anaemia [None]
  - Dysphagia [None]
  - Dyskinesia [None]
  - Cerebellar ataxia [None]
  - Hallucination [None]
  - Abasia [None]
  - Balance disorder [None]
  - General physical health deterioration [None]
